FAERS Safety Report 5867262-5 (Version None)
Quarter: 2008Q3

REPORT INFORMATION
  Report Type: 
  Country: None (occurrence: None)
  Receive Date: 20080829
  Receipt Date: 20080829
  Transmission Date: 20090109
  Serious: Yes (Death, Hospitalization)
  Sender: FDA-Public Use
  Company Number: None

PATIENT
  Sex: Female
  Weight: 96.4 kg

DRUGS (3)
  1. CYTARABINE [Suspect]
     Dosage: 130 MG
     Dates: start: 20080826, end: 20080827
  2. DAUNORUBICIN HCL [Suspect]
     Dosage: 186 MG
     Dates: end: 20080826
  3. ETOPOSIDE [Suspect]
     Dosage: 207 MG
     Dates: end: 20080826

REACTIONS (4)
  - BRADYCARDIA [None]
  - HYPOTENSION [None]
  - HYPOXIA [None]
  - RESPIRATORY DISTRESS [None]
